FAERS Safety Report 7027504-X (Version None)
Quarter: 2010Q4

REPORT INFORMATION
  Report Type: 
  Country: None (occurrence: None)
  Receive Date: 20101004
  Receipt Date: 20100826
  Transmission Date: 20110411
  Serious: Yes (Death, Other)
  Sender: FDA-Public Use
  Company Number: PHHO2010US14892

PATIENT
  Sex: Female

DRUGS (5)
  1. AFINITOR [Suspect]
     Indication: COLORECTAL CANCER METASTATIC
     Dosage: 10 MG, DAILY
     Route: 048
     Dates: end: 20100721
  2. AMBIEN [Concomitant]
  3. ATIVAN [Concomitant]
  4. FUROSEMIDE [Concomitant]
  5. GELCLAIR                                /UNK/ [Concomitant]

REACTIONS (2)
  - DEATH [None]
  - GENERAL PHYSICAL HEALTH DETERIORATION [None]
